FAERS Safety Report 8119694-2 (Version None)
Quarter: 2012Q1

REPORT INFORMATION
  Report Type: 
  Country: None (occurrence: None)
  Receive Date: 20120207
  Receipt Date: 20120203
  Transmission Date: 20120608
  Serious: Yes (Life-Threatening, Other)
  Sender: FDA-Public Use
  Company Number: PHHY2011BR03032

PATIENT
  Sex: Male
  Weight: 80 kg

DRUGS (2)
  1. FORMOTEROL FUMARATE [Suspect]
     Indication: DYSPNOEA
  2. FORMOTEROL FUMARATE [Suspect]
     Indication: BRONCHITIS
     Dosage: 4 DF,  2 CAPSULES IN THE MORNING AND 2 CAPSULES AT NIGHT
     Dates: start: 20100901, end: 20120130

REACTIONS (3)
  - APPARENT DEATH [None]
  - DYSPNOEA [None]
  - TRAUMATIC LUNG INJURY [None]
